FAERS Safety Report 6527410-0 (Version None)
Quarter: 2010Q1

REPORT INFORMATION
  Report Type: 
  Country: None (occurrence: None)
  Receive Date: 20100105
  Receipt Date: 20091225
  Transmission Date: 20100710
  Serious: Yes (Death)
  Sender: FDA-Public Use
  Company Number: JP-PFIZER INC-2009314893

PATIENT
  Age: 75 Year
  Sex: Female
  Weight: 46 kg

DRUGS (7)
  1. SILDENAFIL CITRATE [Suspect]
     Indication: PULMONARY ARTERIAL HYPERTENSION
     Dosage: 20 MG, 3X/DAY
     Route: 048
     Dates: start: 20080709
  2. FLOLAN [Concomitant]
     Indication: PULMONARY HYPERTENSION
     Dosage: UNK
     Dates: start: 20080623, end: 20080722
  3. TAKEPRON [Concomitant]
     Dates: start: 20080705
  4. BISOLVON [Concomitant]
     Dates: start: 20080626
  5. ALDACTONE [Concomitant]
     Dates: start: 20080705
  6. ALOTEC [Concomitant]
     Dates: start: 20080626
  7. LAXOBERON [Concomitant]
     Dates: start: 20080801

REACTIONS (1)
  - CARDIAC FAILURE [None]
